FAERS Safety Report 7478717-4 (Version None)
Quarter: 2011Q2

REPORT INFORMATION
  Report Type: 
  Country: None (occurrence: None)
  Receive Date: 20110513
  Receipt Date: 20110429
  Transmission Date: 20111010
  Serious: Yes (Other)
  Sender: FDA-Public Use
  Company Number: US-CELGENEUS-163-21880-11050245

PATIENT
  Age: 64 Year
  Sex: Female

DRUGS (9)
  1. DEXAMETHASONE SODIUM POSPHATE [Suspect]
     Route: 065
  2. BORTEZOMIB [Suspect]
     Route: 065
  3. VINCRISTINE [Suspect]
     Route: 065
  4. REVLIMID [Suspect]
     Route: 048
  5. AMIFOSTINE [Concomitant]
     Route: 051
  6. MELPHALAN HYDROCHLORIDE [Concomitant]
     Route: 051
  7. FILGRASTIM [Concomitant]
     Route: 058
  8. DOXORUBICIN HCL [Suspect]
     Route: 065
  9. CYCLOPHOSPHAMIDE [Suspect]
     Route: 065

REACTIONS (1)
  - ACUTE GRAFT VERSUS HOST DISEASE IN INTESTINE [None]
